FAERS Safety Report 10021910 (Version 3)
Quarter: 2014Q3

REPORT INFORMATION
  Report Type: Spontaneous
  Country: US (occurrence: US)
  Receive Date: 20140319
  Receipt Date: 20140813
  Transmission Date: 20150326
  Serious: Yes (Death, Other)
  Sender: FDA-Public Use
  Company Number: US-009507513-2011SP021427

PATIENT
  Sex: Female
  Weight: 140.16 kg

DRUGS (2)
  1. NUVARING [Suspect]
     Active Substance: ETHINYL ESTRADIOL\ETONOGESTREL
     Indication: PRODUCT USED FOR UNKNOWN INDICATION
     Route: 067
     Dates: end: 200611
  2. NUVARING [Suspect]
     Active Substance: ETHINYL ESTRADIOL\ETONOGESTREL
     Dosage: UNK
     Route: 067
     Dates: end: 20080507

REACTIONS (10)
  - Deep vein thrombosis [Fatal]
  - Fall [Unknown]
  - Abortion [Recovered/Resolved with Sequelae]
  - Abdominal pain [Recovering/Resolving]
  - Limb injury [Fatal]
  - Pulmonary embolism [Fatal]
  - Ovarian cyst [Recovered/Resolved]
  - Anxiety [Unknown]
  - Unintended pregnancy [Recovered/Resolved]
  - Retained products of conception [Unknown]

NARRATIVE: CASE EVENT DATE: 2006
